FAERS Safety Report 7331329-5 (Version None)
Quarter: 2011Q1

REPORT INFORMATION
  Report Type: 
  Country: None (occurrence: None)
  Receive Date: 20110304
  Receipt Date: 20110223
  Transmission Date: 20110831
  Serious: Yes (Other)
  Sender: FDA-Public Use
  Company Number: US-JNJFOC-20110107945

PATIENT
  Sex: Male
  Weight: 114.76 kg

DRUGS (11)
  1. FOLIC ACID [Concomitant]
     Route: 048
  2. METROGEL [Concomitant]
     Route: 065
  3. PRILOSEC [Concomitant]
     Route: 048
  4. NORVASC [Concomitant]
     Route: 048
  5. ZOCOR [Concomitant]
     Route: 065
  6. FLOMAX [Concomitant]
     Route: 065
  7. AVANDARYL [Concomitant]
  8. REMICADE [Suspect]
     Indication: CROHN'S DISEASE
     Route: 042
  9. LEVSIN [Concomitant]
     Route: 065
  10. LOPRESSOR [Concomitant]
     Route: 048
  11. TETRACYCLINE HCL [Concomitant]
     Route: 065

REACTIONS (6)
  - NAUSEA [None]
  - HYPOTENSION [None]
  - FEELING COLD [None]
  - VOMITING [None]
  - INFUSION RELATED REACTION [None]
  - DIZZINESS [None]
